FAERS Safety Report 22678628 (Version 9)
Quarter: 2025Q4

REPORT INFORMATION
  Report Type: Report from Study
  Country: US (occurrence: US)
  Receive Date: 20230706
  Receipt Date: 20251224
  Transmission Date: 20260118
  Serious: No
  Sender: PFIZER
  Company Number: US-PFIZER INC-PV202300116812

PATIENT
  Age: 61 Year
  Sex: Male

DRUGS (1)
  1. XELJANZ XR [Suspect]
     Active Substance: TOFACITINIB CITRATE
     Indication: Rheumatoid arthritis
     Dosage: 11 MG

REACTIONS (6)
  - Gingival abscess [Recovered/Resolved]
  - Condition aggravated [Unknown]
  - Arthralgia [Recovered/Resolved]
  - Joint swelling [Unknown]
  - Osteoporosis [Recovered/Resolved]
  - Intentional dose omission [Unknown]
